FAERS Safety Report 7529388 (Version 3)
Quarter: 2013Q4

REPORT INFORMATION
  Report Type: Spontaneous
  Country: US (occurrence: US)
  Receive Date: 20100805
  Receipt Date: 20131217
  Transmission Date: 20140711
  Serious: Yes (Other)
  Sender: FDA-Public Use
  Company Number: US-BAYER-201029627NA

PATIENT
  Age: 28 Year
  Sex: Female
  Weight: 81.63 kg

DRUGS (8)
  1. YAZ [Suspect]
     Indication: CONTRACEPTION
     Dosage: UNK
     Route: 048
     Dates: start: 200710, end: 200811
  2. CYMBALTA [Concomitant]
     Indication: ANTIDEPRESSANT THERAPY
     Dosage: UNK
     Dates: start: 200701, end: 200811
  3. VITAMIN C IWAKI [ASCORBIC ACID] [Concomitant]
  4. MOTRIN [Concomitant]
     Dosage: UNK
     Dates: start: 2009
  5. ALEVE COLD + SINUS [Concomitant]
     Dosage: UNK
     Dates: start: 2009
  6. CITALOPRAM [Concomitant]
     Dosage: 20 MG, UNK
  7. CEPHALEXIN [Concomitant]
     Dosage: 500 MG, UNK
  8. IBUPROFEN [IBUPROFEN] [Concomitant]

REACTIONS (5)
  - Gallbladder disorder [None]
  - Depression [None]
  - Pain [None]
  - Biliary dyskinesia [None]
  - Cholecystitis chronic [None]
